FAERS Safety Report 6222294-2 (Version None)
Quarter: 2009Q2

REPORT INFORMATION
  Report Type: 
  Country: None (occurrence: None)
  Receive Date: 20090611
  Receipt Date: 20090603
  Transmission Date: 20091009
  Serious: Yes (Other)
  Sender: FDA-Public Use
  Company Number: PHHY2008ZA33986

PATIENT
  Sex: Male
  Weight: 69.8 kg

DRUGS (5)
  1. GLEEVEC [Suspect]
     Indication: CHRONIC MYELOID LEUKAEMIA
     Dosage: 400 MG, BID
     Dates: start: 20030429
  2. GLEEVEC [Suspect]
     Dosage: 600 MG DAILY
     Dates: start: 20080422, end: 20080630
  3. GLEEVEC [Suspect]
     Dosage: 600/800 MG ALTERNATE DAYS
     Dates: start: 20080601
  4. RIFAFOUR [Concomitant]
     Dosage: 4 DAILY
  5. PYRIDOXINE [Concomitant]
     Dosage: 25

REACTIONS (6)
  - ASPARTATE AMINOTRANSFERASE INCREASED [None]
  - BLOOD ALKALINE PHOSPHATASE INCREASED [None]
  - DRUG INEFFECTIVE [None]
  - DRUG RESISTANCE [None]
  - GAMMA-GLUTAMYLTRANSFERASE INCREASED [None]
  - PULMONARY TUBERCULOSIS [None]
